FAERS Safety Report 10936354 (Version 1)
Quarter: 2015Q1

REPORT INFORMATION
  Report Type: Spontaneous
  Country: US (occurrence: None)
  Receive Date: 20150212
  Receipt Date: 20150212
  Transmission Date: 20150721
  Serious: No
  Sender: FDA-Public Use
  Company Number: TPA2011A00631

PATIENT
  Age: 71 Year
  Sex: Male
  Weight: 62.6 kg

DRUGS (4)
  1. PRAVASTATIN [Concomitant]
     Active Substance: PRAVASTATIN\PRAVASTATIN SODIUM
  2. LISINOPRIL. [Concomitant]
     Active Substance: LISINOPRIL
  3. DIURETIC [Concomitant]
     Active Substance: UNSPECIFIED INGREDIENT
  4. ULORIC [Suspect]
     Active Substance: FEBUXOSTAT
     Indication: GOUT
     Dosage: 1 IN 1 D
     Route: 048
     Dates: start: 20110121

REACTIONS (2)
  - Joint swelling [None]
  - Gout [None]

NARRATIVE: CASE EVENT DATE: 2011
